FAERS Safety Report 22105259 (Version 1)
Quarter: 2023Q1

REPORT INFORMATION
  Report Type: Spontaneous
  Country: JP (occurrence: JP)
  Receive Date: 20230317
  Receipt Date: 20230317
  Transmission Date: 20230418
  Serious: Yes (Hospitalization, Other)
  Sender: FDA-Public Use
  Company Number: JP-SA-2023SA081262

PATIENT
  Age: 79 Year
  Sex: Male

DRUGS (1)
  1. TAXOTERE [Suspect]
     Active Substance: DOCETAXEL
     Indication: Oesophageal squamous cell carcinoma stage III
     Route: 041

REACTIONS (2)
  - Oesophageal ulcer [Recovering/Resolving]
  - Abdominal wall abscess [Recovered/Resolved]
